FAERS Safety Report 17816399 (Version 1)
Quarter: 2020Q2

REPORT INFORMATION
  Report Type: Spontaneous
  Country: CA (occurrence: CA)
  Receive Date: 20200522
  Receipt Date: 20200522
  Transmission Date: 20200714
  Serious: Yes (Other)
  Sender: FDA-Public Use
  Company Number: CA-ALKEM LABORATORIES LIMITED-CA-ALKEM-2020-02019

PATIENT

DRUGS (1)
  1. LIDOCAINE. [Suspect]
     Active Substance: LIDOCAINE
     Indication: CANCER PAIN
     Dosage: 10 MILLIGRAM/KILOGRAM  OVER 5.5 HOURS
     Route: 058

REACTIONS (3)
  - Tachycardia [Unknown]
  - Electrocardiogram ST segment depression [Unknown]
  - Ischaemia [Unknown]
